FAERS Safety Report 15321482 (Version 1)
Quarter: 2018Q3

REPORT INFORMATION
  Report Type: Spontaneous
  Country: US (occurrence: US)
  Receive Date: 20180821
  Receipt Date: 20180821
  Transmission Date: 20181010
  Serious: Yes (Other)
  Sender: FDA-Public Use
  Company Number: None

PATIENT
  Age: 24 Year
  Sex: Female
  Weight: 54.43 kg

DRUGS (4)
  1. CEFDINIR 300MG CAPSULES, 300 MG [Suspect]
     Active Substance: CEFDINIR
     Indication: SINUSITIS
     Dosage: ?          QUANTITY:20 DF DOSAGE FORM;?
     Route: 048
     Dates: start: 20180813, end: 20180818
  2. PROGESTERONE BIRTH CONTROL [Concomitant]
  3. DAILY VITAMIN [Concomitant]
     Active Substance: VITAMINS
  4. PROBIOTIC [Concomitant]
     Active Substance: PROBIOTICS NOS

REACTIONS (4)
  - Faeces discoloured [None]
  - Impaired work ability [None]
  - Diarrhoea [None]
  - Vomiting [None]

NARRATIVE: CASE EVENT DATE: 20180818
